FAERS Safety Report 12979345 (Version 1)
Quarter: 2016Q4

REPORT INFORMATION
  Report Type: Spontaneous
  Country: US (occurrence: US)
  Receive Date: 20161128
  Receipt Date: 20161128
  Transmission Date: 20170207
  Serious: No
  Sender: FDA-Public Use
  Company Number: US-GLAXOSMITHKLINE-US2016169639

PATIENT
  Age: 84 Year
  Sex: Female

DRUGS (4)
  1. ZITHROMAX [Concomitant]
     Active Substance: AZITHROMYCIN DIHYDRATE
  2. BREO ELLIPTA [Suspect]
     Active Substance: FLUTICASONE FUROATE\VILANTEROL TRIFENATATE
     Indication: DYSPNOEA
     Dosage: 1 PUFF(S), QD
     Route: 055
     Dates: start: 20161114, end: 20161115
  3. NEBULIZER (NAME UNKNOWN) [Concomitant]
     Active Substance: DEVICE
  4. INFLUENZA VACCINE UNSPECIFIED 2016-2017 SEASON SOLUTION FOR INJECTION [Suspect]
     Active Substance: INFLUENZA VIRUS VACCINE
     Indication: PROPHYLAXIS
     Dates: start: 20161114, end: 20161114

REACTIONS (7)
  - Erythema [Unknown]
  - Hypertension [Not Recovered/Not Resolved]
  - Incorrect product storage [Unknown]
  - Fatigue [Unknown]
  - Palmar erythema [Unknown]
  - Feeling abnormal [Unknown]
  - Expired product administered [Unknown]

NARRATIVE: CASE EVENT DATE: 201611
